FAERS Safety Report 8124451-7 (Version None)
Quarter: 2012Q1

REPORT INFORMATION
  Report Type: 
  Country: None (occurrence: None)
  Receive Date: 20120209
  Receipt Date: 20120131
  Transmission Date: 20120608
  Serious: Yes (Other)
  Sender: FDA-Public Use
  Company Number: US-JNJFOC-20120200445

PATIENT
  Age: 13 Year
  Sex: Female

DRUGS (4)
  1. TOPAMAX [Suspect]
     Indication: CONVULSION
     Route: 048
     Dates: start: 20120101
  2. TOPAMAX [Suspect]
     Dosage: TWICE DAILY
     Route: 048
     Dates: start: 20071001
  3. TOPAMAX [Suspect]
     Route: 048
  4. TOPIRAMATE [Suspect]
     Indication: CONVULSION
     Route: 065

REACTIONS (3)
  - WEIGHT INCREASED [None]
  - DRUG EFFECT DECREASED [None]
  - PETIT MAL EPILEPSY [None]
